FAERS Safety Report 25844599 (Version 1)
Quarter: 2025Q3

REPORT INFORMATION
  Report Type: Spontaneous
  Country: CA (occurrence: CA)
  Receive Date: 20250925
  Receipt Date: 20250925
  Transmission Date: 20251020
  Serious: Yes (Other)
  Sender: ACCORD
  Company Number: None

PATIENT
  Age: 79 Year
  Sex: Female
  Weight: 60 kg

DRUGS (5)
  1. METHOTREXATE [Suspect]
     Active Substance: METHOTREXATE
     Indication: Psoriatic arthropathy
  2. ASPIRIN [Concomitant]
     Active Substance: ASPIRIN
  3. FOLIC ACID [Concomitant]
     Active Substance: FOLIC ACID
  4. NITROGLYCERIN [Concomitant]
     Active Substance: NITROGLYCERIN
  5. SYNTHROID [Concomitant]
     Active Substance: LEVOTHYROXINE SODIUM
     Indication: Thyroid disorder

REACTIONS (5)
  - Breath odour [Unknown]
  - Lung cyst [Unknown]
  - Myocardial infarction [Unknown]
  - Renal cyst [Unknown]
  - Drug ineffective [Unknown]
